FAERS Safety Report 9398734 (Version 1)
Quarter: 2013Q3

REPORT INFORMATION
  Report Type: Spontaneous
  Country: AU (occurrence: AU)
  Receive Date: 20130712
  Receipt Date: 20130712
  Transmission Date: 20140515
  Serious: Yes (Hospitalization)
  Sender: FDA-Public Use
  Company Number: AU-009507513-1307AUS005358

PATIENT
  Age: 58 Year
  Sex: Male

DRUGS (9)
  1. RIBAVIRIN [Suspect]
     Dosage: 1000 MG, QD
  2. RIBAVIRIN [Suspect]
     Dosage: 600 MG, QD
     Dates: start: 20130531, end: 2013
  3. RIBAVIRIN [Suspect]
     Dosage: 400 MG, QD
     Dates: start: 20130604, end: 2013
  4. TELAPREVIR [Suspect]
     Indication: LIVER DISORDER
     Dosage: 6 DOSE UNSPECIFIED, DAILY
     Route: 048
     Dates: start: 20130421, end: 20130609
  5. LEXAPRO [Concomitant]
     Dosage: UNK
  6. PANADEINE (ACETAMINOPHEN (+) CODEINE PHOSPHATE) [Concomitant]
     Dosage: UNK
  7. PEGASYS [Concomitant]
     Dosage: UNK
  8. ZOPICLONE [Concomitant]
     Dosage: UNK
  9. PEGINTERFERON ALFA-2A [Suspect]

REACTIONS (5)
  - Dyspnoea exertional [Unknown]
  - Headache [Unknown]
  - Nausea [Unknown]
  - Haemoglobin decreased [Unknown]
  - Anxiety [Unknown]
